FAERS Safety Report 10728865 (Version 1)
Quarter: 2015Q1

REPORT INFORMATION
  Report Type: Spontaneous
  Country: IT (occurrence: IT)
  Receive Date: 20150122
  Receipt Date: 20150122
  Transmission Date: 20150721
  Serious: Yes (Hospitalization)
  Sender: FDA-Public Use
  Company Number: IT-ROCHE-1524207

PATIENT
  Age: 67 Year
  Sex: Female

DRUGS (3)
  1. AVASTIN [Suspect]
     Active Substance: BEVACIZUMAB
     Indication: OVARIAN CANCER
     Dosage: 1X400 MG VIAL OF CONCENTRATE FOR SOLUTION FOR INJ., CONCENTRATE FOR SOLUTION FOR IV INFUSION
     Route: 042
     Dates: start: 20141223, end: 20150119
  2. PACLITAXEL. [Suspect]
     Active Substance: PACLITAXEL
     Indication: OVARIAN CANCER
     Dosage: 6 MG/ML CONCENTRATE FOR SOLUTION FOR INFUSION, CONCENTRATE FOR SOLUTION FOR IV INFUSION
     Route: 042
     Dates: start: 20141223, end: 20150119
  3. CARBOPLATINO [Suspect]
     Active Substance: CARBOPLATIN
     Indication: OVARIAN CANCER
     Dosage: 1 X 45 ML 10 MG/ML  BOTTLE, SOLUTION FOR INTRAVENOUS INFUSION
     Route: 042
     Dates: start: 20141223, end: 20150119

REACTIONS (2)
  - Myalgia [Recovered/Resolved]
  - Hyperpyrexia [Recovered/Resolved]

NARRATIVE: CASE EVENT DATE: 20141227
